FAERS Safety Report 12458298 (Version 7)
Quarter: 2019Q1

REPORT INFORMATION
  Report Type: Report from Study
  Country: CA (occurrence: CA)
  Receive Date: 20160613
  Receipt Date: 20190329
  Transmission Date: 20190417
  Serious: Yes (Other)
  Sender: FDA-Public Use
  Company Number: CA-ROCHE-1634044

PATIENT
  Age: 69 Year
  Sex: Female
  Weight: 87.3 kg

DRUGS (11)
  1. SIMVASTATIN. [Concomitant]
     Active Substance: SIMVASTATIN
     Route: 065
  2. ESBRIET [Suspect]
     Active Substance: PIRFENIDONE
     Indication: IDIOPATHIC PULMONARY FIBROSIS
     Dosage: 801MG/DAY
     Route: 048
     Dates: start: 20150905
  3. CARBAMAZEPINE. [Concomitant]
     Active Substance: CARBAMAZEPINE
     Route: 065
  4. VENTOLIN [Concomitant]
     Active Substance: ALBUTEROL SULFATE
     Route: 065
  5. ESBRIET [Suspect]
     Active Substance: PIRFENIDONE
     Route: 048
     Dates: start: 201509
  6. EZETIMIBE. [Concomitant]
     Active Substance: EZETIMIBE
     Route: 065
  7. DICLOFENAC [Concomitant]
     Active Substance: DICLOFENAC
     Route: 065
  8. OLMETEC [Concomitant]
     Active Substance: OLMESARTAN MEDOXOMIL
     Route: 065
  9. CARBAMAZEPINE. [Concomitant]
     Active Substance: CARBAMAZEPINE
     Route: 065
  10. OMEPRAZOLE. [Concomitant]
     Active Substance: OMEPRAZOLE
  11. ESBRIET [Suspect]
     Active Substance: PIRFENIDONE
     Route: 048
     Dates: start: 201509

REACTIONS (9)
  - Feeling cold [Recovered/Resolved]
  - Cough [Not Recovered/Not Resolved]
  - Weight increased [Unknown]
  - Nasopharyngitis [Not Recovered/Not Resolved]
  - Weight decreased [Recovering/Resolving]
  - Feeling hot [Recovered/Resolved]
  - Rectal haemorrhage [Unknown]
  - Fatigue [Unknown]
  - Pulmonary function test abnormal [Unknown]

NARRATIVE: CASE EVENT DATE: 20150905
